FAERS Safety Report 5558183-6 (Version None)
Quarter: 2007Q4

REPORT INFORMATION
  Report Type: 
  Country: None (occurrence: None)
  Receive Date: 20071214
  Receipt Date: 20071203
  Transmission Date: 20080405
  Serious: Yes (Hospitalization)
  Sender: FDA-Public Use
  Company Number: TN-PFIZER INC-2007101409

PATIENT
  Age: 51 Year
  Sex: Male

DRUGS (1)
  1. FLAGYL [Suspect]

REACTIONS (1)
  - ENCEPHALOPATHY [None]
